FAERS Safety Report 7654652-3 (Version None)
Quarter: 2011Q3

REPORT INFORMATION
  Report Type: 
  Country: None (occurrence: None)
  Receive Date: 20110804
  Receipt Date: 20110729
  Transmission Date: 20111222
  Serious: Yes (Other)
  Sender: FDA-Public Use
  Company Number: FR-BRISTOL-MYERS SQUIBB COMPANY-15920754

PATIENT
  Age: 60 Year
  Sex: Female
  Weight: 47 kg

DRUGS (4)
  1. CETUXIMAB [Suspect]
     Indication: HEAD AND NECK CANCER
     Dosage: 9TH INF RECENT INF:20JUL20110 MOST RECENT INF:10AUG10 STRENGTH:5MG/ML
     Route: 042
     Dates: start: 20100504
  2. CISPLATIN [Suspect]
     Indication: HEAD AND NECK CANCER
     Dosage: 5TH INF RECENT INF:20JUL20110 MOST RECENT INF:10AUG10
     Route: 042
     Dates: start: 20100505
  3. CILENGITIDE [Suspect]
     Indication: HEAD AND NECK CANCER
     Dosage: 28TH INF RECENT INF:24JUL20110 MOST RECENT INF:13AUG10
     Route: 042
     Dates: start: 20100504
  4. FLUOROURACIL [Suspect]
     Indication: HEAD AND NECK CANCER
     Dosage: 5TH INF RECENT INF:21JUL20110 FROM DAY 1 TO DAY 4 OF CYCLE MOST RECENT INF:11AUG10
     Route: 042
     Dates: start: 20100505

REACTIONS (2)
  - MUCOSAL INFLAMMATION [None]
  - NEUTROPENIA [None]
